FAERS Safety Report 7997884-7 (Version None)
Quarter: 2011Q4

REPORT INFORMATION
  Report Type: 
  Country: None (occurrence: None)
  Receive Date: 20111221
  Receipt Date: 20111208
  Transmission Date: 20120403
  Serious: Yes (Hospitalization, Other)
  Sender: FDA-Public Use
  Company Number: PHHY2010JP73236

PATIENT
  Sex: Female

DRUGS (24)
  1. SUNITINIB MALATE [Suspect]
     Dosage: 50 MG, UNK
     Route: 048
     Dates: start: 20090310, end: 20090331
  2. SUNITINIB MALATE [Suspect]
     Dosage: 37.5 MG, UNK
     Route: 048
     Dates: start: 20091004, end: 20091102
  3. SUNITINIB MALATE [Suspect]
     Dosage: 25 MG, UNK
     Route: 048
     Dates: start: 20100111, end: 20100727
  4. SUNITINIB MALATE [Suspect]
     Dosage: 50 MG, UNK
     Route: 048
     Dates: start: 20090404, end: 20090405
  5. SUNITINIB MALATE [Suspect]
     Dosage: 50 MG, UNK
     Route: 048
     Dates: start: 20090420, end: 20090512
  6. SUNITINIB MALATE [Suspect]
     Dosage: 50 MG, UNK
     Route: 048
     Dates: start: 20090601, end: 20090628
  7. SUNITINIB MALATE [Suspect]
     Dosage: 50 MG, UNK
     Route: 048
     Dates: start: 20090823, end: 20090920
  8. SUNITINIB MALATE [Suspect]
     Dosage: 37.5 MG, UNK
     Route: 048
     Dates: start: 20091128, end: 20091203
  9. SUNITINIB MALATE [Suspect]
     Dosage: 50 MG, UNK
     Route: 048
     Dates: start: 20090516, end: 20090518
  10. SUNITINIB MALATE [Suspect]
     Dosage: 50 MG, UNK
     Route: 048
     Dates: start: 20090712, end: 20090809
  11. LASIX [Concomitant]
     Dosage: 40 MG, UNK
     Route: 048
     Dates: start: 20090410
  12. AMLODIPINE [Concomitant]
     Dosage: UNK
     Dates: start: 20090318
  13. PANCREATIN TRIPLE STRENGTH CAP [Concomitant]
  14. AFINITOR [Suspect]
     Indication: RENAL CELL CARCINOMA
     Dosage: 10 MG, DAILY
     Route: 048
     Dates: start: 20100730, end: 20100805
  15. SUNITINIB MALATE [Suspect]
     Indication: RENAL CELL CARCINOMA
     Dosage: 50 MG, UNK
     Route: 048
     Dates: start: 20090126, end: 20090128
  16. INTERFERON ALFA [Concomitant]
     Dosage: 6000000 IU, UNK
     Dates: start: 20100701
  17. VOGLIBOSE [Concomitant]
     Dosage: 0.6 MG, UNK
     Route: 048
     Dates: start: 20080910
  18. OMEPRAZOLE [Concomitant]
  19. INTERFERON ALFA [Concomitant]
     Dosage: 9000000 IU, UNK
     Dates: start: 20060901
  20. TECELEUKIN [Concomitant]
     Dosage: 1400000 IU, UNK
     Dates: start: 20070701, end: 20081001
  21. AFINITOR [Suspect]
     Dosage: 5 MG,DAILY
     Route: 048
     Dates: start: 20100812, end: 20100823
  22. SUNITINIB MALATE [Suspect]
     Dosage: 50 MG, UNK
     Route: 048
     Dates: start: 20090130, end: 20090223
  23. SORAFENIB TOSILATE [Concomitant]
     Indication: METASTATIC RENAL CELL CARCINOMA
     Dosage: UNK
     Dates: start: 20081127, end: 20081208
  24. LEVOTHYROXINE SODIUM [Concomitant]
     Dosage: 100 UG, UNK
     Route: 048
     Dates: start: 20090303

REACTIONS (5)
  - MALAISE [None]
  - NEOPLASM PROGRESSION [None]
  - FATIGUE [None]
  - PLATELET COUNT DECREASED [None]
  - NEOPLASM MALIGNANT [None]
